FAERS Safety Report 13557245 (Version 1)
Quarter: 2017Q2

REPORT INFORMATION
  Report Type: Spontaneous
  Country: US (occurrence: US)
  Receive Date: 20170518
  Receipt Date: 20170518
  Transmission Date: 20170830
  Serious: Yes (Hospitalization, Other)
  Sender: FDA-Public Use
  Company Number: US-APOTEX-2017AP012182

PATIENT
  Age: 63 Year
  Sex: Female

DRUGS (1)
  1. AMIODARONE HCL INJECTION [Suspect]
     Active Substance: AMIODARONE HYDROCHLORIDE
     Indication: WOLFF-PARKINSON-WHITE SYNDROME
     Dosage: UNK
     Route: 042

REACTIONS (2)
  - Ventricular fibrillation [Unknown]
  - Cardiac arrest [Unknown]
